FAERS Safety Report 5028434-5 (Version None)
Quarter: 2006Q2

REPORT INFORMATION
  Report Type: 
  Country: None (occurrence: None)
  Receive Date: 20060617
  Receipt Date: 20060331
  Transmission Date: 20061013
  Serious: Yes (Hospitalization)
  Sender: FDA-Public Use
  Company Number: US-GLAXOSMITHKLINE-A0599919A

PATIENT
  Sex: Male

DRUGS (5)
  1. EPIVIR [Suspect]
     Indication: HIV INFECTION
     Dosage: 1TAB TWICE PER DAY
     Route: 048
     Dates: start: 20040901, end: 20060301
  2. HEPATITIS B VACCINE [Suspect]
     Route: 065
  3. VIREAD [Concomitant]
     Dates: start: 20040901, end: 20060301
  4. SUSTIVA [Concomitant]
     Dates: start: 20040901, end: 20060301
  5. HEPATITIS A VACCINE [Concomitant]

REACTIONS (21)
  - ABDOMINAL DISCOMFORT [None]
  - ABDOMINAL DISTENSION [None]
  - ABDOMINAL PAIN [None]
  - CHOLESTASIS [None]
  - CHRONIC HEPATITIS [None]
  - DIARRHOEA [None]
  - DYSGEUSIA [None]
  - EOSINOPHILIA [None]
  - GASTRIC DISORDER [None]
  - HEPATITIS [None]
  - HEPATITIS C [None]
  - HEPATOMEGALY [None]
  - LIVER DISORDER [None]
  - OBESITY [None]
  - PANCREATIC ATROPHY [None]
  - PANCREATITIS [None]
  - PHARYNGOLARYNGEAL PAIN [None]
  - PNEUMONIA [None]
  - PRURITUS [None]
  - SINUS DISORDER [None]
  - SOMNOLENCE [None]
